FAERS Safety Report 4687446-1 (Version None)
Quarter: 2005Q2

REPORT INFORMATION
  Report Type: 
  Country: None (occurrence: None)
  Receive Date: 20050610
  Receipt Date: 20050526
  Transmission Date: 20051028
  Serious: Yes (Death)
  Sender: FDA-Public Use
  Company Number: US-JNJFOC-20050507147

PATIENT
  Sex: Female
  Weight: 68.04 kg

DRUGS (10)
  1. IBUPROFEN [Suspect]
     Indication: SUICIDE ATTEMPT
  2. NORTRIPTYLINE HCL [Suspect]
     Indication: SUICIDE ATTEMPT
  3. AMITRIPTYLINE HYDROCHLORIDE [Suspect]
     Indication: SUICIDE ATTEMPT
  4. VENLAFAXINE HCL [Suspect]
     Indication: SUICIDE ATTEMPT
  5. NEURONTIN [Suspect]
     Indication: MOVEMENT DISORDER
  6. NEURONTIN [Suspect]
     Indication: ALCOHOLIC SEIZURE
  7. NEURONTIN [Suspect]
     Indication: BIPOLAR DISORDER
  8. OXAZEPAM [Concomitant]
  9. BENZODIAZEPINE DERIVATIVES [Concomitant]
  10. OPIOIDS [Concomitant]

REACTIONS (4)
  - COMPLETED SUICIDE [None]
  - DRUG INEFFECTIVE [None]
  - LOSS OF CONSCIOUSNESS [None]
  - MULTIPLE DRUG OVERDOSE ACCIDENTAL [None]
